FAERS Safety Report 5174697-5 (Version None)
Quarter: 2006Q4

REPORT INFORMATION
  Report Type: 
  Country: None (occurrence: None)
  Receive Date: 20061214
  Receipt Date: 20060613
  Transmission Date: 20070319
  Serious: No
  Sender: FDA-Public Use
  Company Number: US-AMGEN-KDL182636

PATIENT
  Sex: Male

DRUGS (6)
  1. ENBREL [Suspect]
     Indication: PSORIASIS
     Dates: start: 20060501
  2. DIOVAN [Concomitant]
  3. ATENOLOL [Concomitant]
  4. HYDRALAZINE HYDROCHLORIDE [Concomitant]
  5. ARICEPT [Concomitant]
  6. CARDURA [Concomitant]

REACTIONS (3)
  - CONDITION AGGRAVATED [None]
  - HYPERTENSION [None]
  - THERAPEUTIC RESPONSE DELAYED [None]
